FAERS Safety Report 9541857 (Version 1)
Quarter: 2013Q2

REPORT INFORMATION
  Report Type: Spontaneous
  Country: US (occurrence: None)
  Receive Date: 20130524
  Receipt Date: 20130524
  Transmission Date: 20140414
  Serious: No
  Sender: FDA-Public Use
  Company Number: PHGEH2013US000700

PATIENT
  Age: 61 Year
  Sex: Female
  Weight: 71.7 kg

DRUGS (4)
  1. GILENYA (FINGOLIMOD) CAPSULE, 0.5MG [Suspect]
     Indication: MULTIPLE SCLEROSIS
     Dosage: 0.5 MG, QD, ORAL
     Route: 048
     Dates: start: 20111001
  2. AMPYRA (FAMPRIDINE) TABLET, 10MG [Concomitant]
  3. FISH OIL (FISH OIL) [Concomitant]
  4. MULTI-VIT (VITAMINS NOS) [Concomitant]

REACTIONS (4)
  - Laryngitis [None]
  - Dysphonia [None]
  - Influenza like illness [None]
  - Nasopharyngitis [None]
